FAERS Safety Report 22902231 (Version 2)
Quarter: 2023Q4

REPORT INFORMATION
  Report Type: Report from Study
  Country: US (occurrence: US)
  Receive Date: 20230904
  Receipt Date: 20231107
  Transmission Date: 20240110
  Serious: Yes (Hospitalization, Other)
  Sender: FDA-Public Use
  Company Number: US-BIOVITRUM-2023-US-014334

PATIENT
  Age: 30 Year
  Sex: Female

DRUGS (1)
  1. KINERET [Suspect]
     Active Substance: ANAKINRA
     Indication: Still^s disease
     Dosage: TWICE DAILY
     Route: 058
     Dates: start: 20200225

REACTIONS (5)
  - Intentional product misuse [Not Recovered/Not Resolved]
  - Stress [Unknown]
  - Product storage error [Unknown]
  - Therapeutic response shortened [Unknown]
  - Gastrointestinal haemorrhage [Unknown]

NARRATIVE: CASE EVENT DATE: 20200225
